FAERS Safety Report 5588879-1 (Version None)
Quarter: 2008Q1

REPORT INFORMATION
  Report Type: 
  Country: None (occurrence: None)
  Receive Date: 20080111
  Receipt Date: 20080108
  Transmission Date: 20080703
  Serious: Yes (Life-Threatening, Hospitalization)
  Sender: FDA-Public Use
  Company Number: GB-RANBAXY-2008RR-12355

PATIENT

DRUGS (11)
  1. AMLODIPINE RANBAXY 5MG TABLETTER [Suspect]
     Dosage: 280 MG, UNK
  2. ANGETTES [Suspect]
     Dosage: 975 MG, UNK
     Route: 048
  3. DOXAZOSIN 2MG TABLETS [Suspect]
     Dosage: 112 MG, UNK
     Route: 048
  4. METFORMIN 500MG TABLETS BP [Suspect]
     Dosage: 6500 MG, UNK
  5. ADRENALINE [Concomitant]
  6. CALCIUM GLUCONATE [Concomitant]
  7. DEXTROSE [Concomitant]
     Dosage: 230 MG, UNK
  8. NORADRENALINE [Concomitant]
  9. POTASSIUM [Concomitant]
     Dosage: 40 MMOL, UNK
  10. INSULIN [Concomitant]
     Dosage: 147 UNK, Q1H
  11. INSULIN [Concomitant]
     Dosage: 280 UNK, Q1H

REACTIONS (6)
  - CARDIOTOXICITY [None]
  - DRUG TOXICITY [None]
  - HYPERKALAEMIA [None]
  - HYPOGLYCAEMIA [None]
  - HYPOTENSION [None]
  - OVERDOSE [None]
